FAERS Safety Report 4531899-6 (Version None)
Quarter: 2004Q4

REPORT INFORMATION
  Report Type: 
  Country: None (occurrence: None)
  Receive Date: 20041216
  Receipt Date: 20041203
  Transmission Date: 20050328
  Serious: Yes (Hospitalization)
  Sender: FDA-Public Use
  Company Number: 2004105674

PATIENT
  Age: 74 Year
  Sex: Female
  Weight: 36.2878 kg

DRUGS (4)
  1. XANAX [Suspect]
     Indication: DYSPHAGIA
     Dosage: 1.5 MG (0.5 MG, 1 IN 3 D), ORAL
     Route: 048
     Dates: start: 19990101
  2. VICODIN [Concomitant]
  3. ENALAPRIL MALEATE [Concomitant]
  4. BISOPROLOL FUMARATE [Concomitant]

REACTIONS (8)
  - ANOREXIA [None]
  - DRUG INEFFECTIVE [None]
  - DYSGEUSIA [None]
  - ENZYME ABNORMALITY [None]
  - ODYNOPHAGIA [None]
  - OESOPHAGEAL PAIN [None]
  - PAIN EXACERBATED [None]
  - WEIGHT DECREASED [None]
